FAERS Safety Report 5442102-7 (Version None)
Quarter: 2007Q3

REPORT INFORMATION
  Report Type: 
  Country: None (occurrence: None)
  Receive Date: 20070904
  Receipt Date: 20070823
  Transmission Date: 20080115
  Serious: Yes (Death, Disabling, Other)
  Sender: FDA-Public Use
  Company Number: JP-ROCHE-468265

PATIENT
  Age: 23 Year
  Sex: Male

DRUGS (26)
  1. MYCOPHENOLATE MOFETIL [Suspect]
     Route: 048
     Dates: start: 20051109, end: 20051109
  2. MYCOPHENOLATE MOFETIL [Suspect]
     Route: 048
     Dates: start: 20051110, end: 20060828
  3. PREDNISOLONE [Suspect]
     Indication: PROPHYLAXIS AGAINST GRAFT VERSUS HOST DISEASE
     Route: 048
     Dates: start: 20040101
  4. PREDNISOLONE [Suspect]
     Route: 048
     Dates: start: 20050101
  5. PREDNISOLONE [Suspect]
     Route: 048
     Dates: start: 20051104, end: 20060731
  6. PREDNISOLONE [Suspect]
     Route: 048
     Dates: start: 20060801, end: 20060914
  7. SOLU-MEDROL [Suspect]
     Route: 042
     Dates: start: 20051031, end: 20051123
  8. DENOSINE [Suspect]
     Indication: PROPHYLAXIS
     Route: 042
     Dates: start: 20051107, end: 20051127
  9. BAKTAR [Suspect]
     Indication: PROPHYLAXIS
     Dosage: TAKEN ON TUESDAY AND FRIDAY.
     Route: 048
  10. BAKTAR [Suspect]
     Dosage: TAKEN ON MONDAY, TUESDAY AND FRIDAY
     Route: 048
     Dates: start: 20051121
  11. ITRIZOLE [Suspect]
     Indication: DRUG USE FOR UNKNOWN INDICATION
     Route: 048
     Dates: start: 20050101
  12. ZOVIRAX [Suspect]
     Indication: PROPHYLAXIS
     Route: 065
     Dates: start: 20060210, end: 20060403
  13. NEORAL [Suspect]
     Indication: PROPHYLAXIS AGAINST GRAFT VERSUS HOST DISEASE
     Dosage: NO DETAILS PROVIDED.
     Route: 048
     Dates: start: 20000101
  14. NEORAL [Suspect]
     Route: 048
     Dates: start: 20040101, end: 20050101
  15. NEORAL [Suspect]
     Route: 048
     Dates: start: 20050101
  16. NEORAL [Suspect]
     Route: 048
     Dates: start: 20051031, end: 20060914
  17. SIMULECT [Concomitant]
     Route: 042
     Dates: start: 20051031, end: 20051104
  18. 1 CONCOMITANT DRUG [Concomitant]
     Dosage: DRUG NAME REPORTED AS ADRENAL HORMONE PREPARATION (STEORID PULSE THERAPY). NO DOSE DETAILS PROVIDED+
     Route: 041
     Dates: start: 20051101, end: 20051101
  19. IMURAN [Concomitant]
     Route: 048
     Dates: start: 20051031, end: 20051108
  20. FUNGUARD [Concomitant]
     Route: 042
     Dates: start: 20051107, end: 20051124
  21. TARGOCID [Concomitant]
     Route: 042
     Dates: start: 20051108, end: 20051124
  22. OZEX [Concomitant]
     Route: 048
     Dates: start: 20051108, end: 20051124
  23. DIFLUCAN [Concomitant]
     Route: 048
     Dates: start: 20051125
  24. OMEPRAZOLE [Concomitant]
     Route: 048
     Dates: start: 20051125, end: 20060717
  25. VALIXA [Concomitant]
     Route: 048
     Dates: start: 20051128, end: 20060210
  26. ALFAROL [Concomitant]
     Route: 048

REACTIONS (5)
  - CYTOMEGALOVIRUS ANTIGEN POSITIVE [None]
  - ENCEPHALITIS VIRAL [None]
  - NERVOUS SYSTEM DISORDER [None]
  - OSTEOPOROSIS [None]
  - RENAL IMPAIRMENT [None]
